FAERS Safety Report 12456811 (Version 4)
Quarter: 2017Q1

REPORT INFORMATION
  Report Type: Spontaneous
  Country: US (occurrence: US)
  Receive Date: 20160610
  Receipt Date: 20170123
  Transmission Date: 20170428
  Serious: Yes (Other)
  Sender: FDA-Public Use
  Company Number: US-PFIZER INC-2016270498

PATIENT
  Sex: Female

DRUGS (1)
  1. LYRICA [Suspect]
     Active Substance: PREGABALIN
     Dosage: UNK

REACTIONS (6)
  - Malaise [Unknown]
  - Neoplasm malignant [Unknown]
  - Accident [Unknown]
  - Complex regional pain syndrome [Unknown]
  - Pneumonia [Unknown]
  - Amnesia [Unknown]

NARRATIVE: CASE EVENT DATE: 201610
